FAERS Safety Report 20747139 (Version 1)
Quarter: 2022Q2

REPORT INFORMATION
  Report Type: Spontaneous
  Country: US (occurrence: US)
  Receive Date: 20220425
  Receipt Date: 20220425
  Transmission Date: 20220721
  Serious: No
  Sender: FDA-Public Use
  Company Number: US-PFIZER INC-202100971460

PATIENT

DRUGS (1)
  1. NEURONTIN [Interacting]
     Active Substance: GABAPENTIN
     Dosage: UNK

REACTIONS (1)
  - Drug interaction [Unknown]
